FAERS Safety Report 20983734 (Version 1)
Quarter: 2022Q2

REPORT INFORMATION
  Report Type: Report from Study
  Country: CA (occurrence: CA)
  Receive Date: 20220620
  Receipt Date: 20220620
  Transmission Date: 20220720
  Serious: Yes (Other)
  Sender: FDA-Public Use
  Company Number: CA-ABBVIE-22K-028-4439301-00

PATIENT
  Sex: Female

DRUGS (7)
  1. RINVOQ [Suspect]
     Active Substance: UPADACITINIB
     Indication: Rheumatoid arthritis
     Route: 048
     Dates: start: 20200902, end: 202202
  2. RINVOQ [Suspect]
     Active Substance: UPADACITINIB
     Route: 048
     Dates: start: 2022
  3. CELEBREX [Concomitant]
     Active Substance: CELECOXIB
     Indication: Product used for unknown indication
     Dates: end: 2022
  4. COVID-19 VACCINE [Concomitant]
     Indication: COVID-19 immunisation
     Dosage: 1ST DOSE
     Route: 030
  5. COVID-19 VACCINE [Concomitant]
     Dosage: 2ND DOSE
     Route: 030
  6. COVID-19 VACCINE [Concomitant]
     Dosage: 3RD DOSE
     Route: 030
  7. COVID-19 VACCINE [Concomitant]
     Dosage: 4TH DOSE
     Route: 030

REACTIONS (5)
  - Nasal operation [Unknown]
  - Urinary tract infection [Not Recovered/Not Resolved]
  - Vaginal infection [Unknown]
  - Fatigue [Unknown]
  - Pyrexia [Unknown]

NARRATIVE: CASE EVENT DATE: 20210101
